FAERS Safety Report 24817065 (Version 2)
Quarter: 2025Q1

REPORT INFORMATION
  Report Type: Spontaneous
  Country: US (occurrence: US)
  Receive Date: 20250108
  Receipt Date: 20250110
  Transmission Date: 20250409
  Serious: No
  Sender: VIIV
  Company Number: US-VIIV HEALTHCARE-US2025001066

PATIENT
  Age: 69 Year
  Sex: Male
  Weight: 70.31 kg

DRUGS (1)
  1. SELZENTRY [Suspect]
     Active Substance: MARAVIROC
     Indication: Product used for unknown indication

REACTIONS (2)
  - Tremor [Unknown]
  - Product dose omission issue [Unknown]

NARRATIVE: CASE EVENT DATE: 20241230
